FAERS Safety Report 4724334-6 (Version None)
Quarter: 2005Q3

REPORT INFORMATION
  Report Type: 
  Country: None (occurrence: None)
  Receive Date: 20050720
  Receipt Date: 20050720
  Transmission Date: 20060218
  Serious: Yes (Hospitalization)
  Sender: FDA-Public Use
  Company Number: None

PATIENT
  Age: 56 Year
  Sex: Female

DRUGS (6)
  1. ADRIAMYCIN [Suspect]
     Indication: BREAST CANCER
     Dosage: 80MG Q 21 DAYS IV
     Route: 042
     Dates: start: 20050328, end: 20050621
  2. CYTOXAN [Suspect]
     Indication: BREAST CANCER
     Dosage: 1300 MG Q 21 DAYS  IV
     Route: 042
     Dates: start: 20050328, end: 20050621
  3. TAXOTERE [Suspect]
     Indication: BREAST CANCER
     Dosage: 122 MG Q 21 D IV
     Route: 042
     Dates: start: 20050328, end: 20050621
  4. LOPRESSOR [Concomitant]
  5. TYLOX [Concomitant]
  6. COUMADIN [Concomitant]

REACTIONS (2)
  - DIVERTICULITIS [None]
  - PYREXIA [None]
